FAERS Safety Report 25651478 (Version 1)
Quarter: 2025Q3

REPORT INFORMATION
  Report Type: Spontaneous
  Country: EU (occurrence: EU)
  Receive Date: 20250806
  Receipt Date: 20250806
  Transmission Date: 20251020
  Serious: Yes (Other)
  Sender: AMGEN
  Company Number: EU-AMGEN-FRASP2025151967

PATIENT
  Age: 37 Year
  Sex: Male

DRUGS (3)
  1. ECULIZUMAB [Suspect]
     Active Substance: ECULIZUMAB
     Indication: Malignant atrophic papulosis
     Dosage: 600 MILLIGRAM, QWK, FOR 4 WEEKS
     Route: 040
  2. ECULIZUMAB [Suspect]
     Active Substance: ECULIZUMAB
     Dosage: 1200 MILLIGRAM, Q2WK
     Route: 040
  3. ILOPROST [Concomitant]
     Active Substance: ILOPROST
     Route: 040

REACTIONS (5)
  - Ileal perforation [Unknown]
  - Cerebral infarction [Unknown]
  - Drug effective for unapproved indication [Unknown]
  - Drug ineffective for unapproved indication [Unknown]
  - Off label use [Unknown]
